FAERS Safety Report 5215753-2 (Version None)
Quarter: 2007Q1

REPORT INFORMATION
  Report Type: 
  Country: None (occurrence: None)
  Receive Date: 20070116
  Receipt Date: 20070111
  Transmission Date: 20070707
  Serious: Yes (Hospitalization)
  Sender: FDA-Public Use
  Company Number: 2006BI018304

PATIENT
  Age: 46 Year
  Sex: Male

DRUGS (4)
  1. AVONEX [Suspect]
     Indication: MULTIPLE SCLEROSIS
     Dosage: 30 UG; QW; IM
     Route: 030
     Dates: start: 20040901, end: 20061117
  2. FOLIC ACID [Concomitant]
  3. HEPAVIT [Concomitant]
  4. ACETAMINOPHEN [Concomitant]

REACTIONS (4)
  - CHOLECYSTITIS [None]
  - DISEASE RECURRENCE [None]
  - GALLBLADDER DISORDER [None]
  - PANCREATITIS RELAPSING [None]
